FAERS Safety Report 5509019-0 (Version None)
Quarter: 2007Q4

REPORT INFORMATION
  Report Type: 
  Country: None (occurrence: None)
  Receive Date: 20071107
  Receipt Date: 20071029
  Transmission Date: 20080405
  Serious: Yes (Hospitalization)
  Sender: FDA-Public Use
  Company Number: FR-BRISTOL-MYERS SQUIBB COMPANY-13969274

PATIENT
  Age: 59 Year
  Sex: Female

DRUGS (4)
  1. LYSODREN [Suspect]
     Indication: ADRENOCORTICAL CARCINOMA
     Dosage: MITOTANE STARTED IN APR-2007, LAST (6TH) COURSE STARTED FROM 17-SEP-2007 TO 20-SEP-2007
     Route: 048
     Dates: start: 20070917, end: 20070920
  2. CISPLATIN [Suspect]
     Indication: ADRENOCORTICAL CARCINOMA
     Dosage: STARTED ON 25-JUL-2007; LAST (6TH) COURSE STARTED FROM 17-SEP-2007 TO 20-SEP-2007; DURATION: 57 DAY
     Route: 042
     Dates: start: 20070917, end: 20070920
  3. DOXORUBICIN HCL [Suspect]
     Indication: ADRENOCORTICAL CARCINOMA
     Dosage: STARTED ON 23-JUL-2007; LAST (6TH) COURSE STARTED FROM 17-SEP-2007 TO 20-SEP-2007; DURATION: 56 DAY
     Route: 042
     Dates: start: 20070917, end: 20070920
  4. VEPESID [Suspect]
     Indication: ADRENOCORTICAL CARCINOMA
     Dosage: STARTED ON 24-JUL-2007; LAST (6TH) COURSE STARTED FROM 17-SEP-2007 TO 20-SEP-2007; DURATION: 58 DAY
     Dates: start: 20070917, end: 20070920

REACTIONS (3)
  - DIARRHOEA [None]
  - FEBRILE BONE MARROW APLASIA [None]
  - GENERAL PHYSICAL HEALTH DETERIORATION [None]
